FAERS Safety Report 11326239 (Version 1)
Quarter: 2015Q3

REPORT INFORMATION
  Report Type: Spontaneous
  Country: US (occurrence: US)
  Receive Date: 20150731
  Receipt Date: 20150731
  Transmission Date: 20151125
  Serious: No
  Sender: FDA-Public Use
  Company Number: US-ASTRAZENECA-2015SE70938

PATIENT
  Sex: Female
  Weight: 97.5 kg

DRUGS (1)
  1. BYDUREON [Suspect]
     Active Substance: EXENATIDE
     Indication: TYPE 2 DIABETES MELLITUS
     Dosage: 2 MG 4 COUNT ONCE A WEEK
     Route: 058

REACTIONS (6)
  - Chest discomfort [Unknown]
  - Feeling abnormal [Unknown]
  - Injection site nodule [Unknown]
  - Hyperhidrosis [Unknown]
  - Anxiety [Unknown]
  - Injection site haemorrhage [Unknown]
